FAERS Safety Report 6675428-X (Version None)
Quarter: 2010Q2

REPORT INFORMATION
  Report Type: 
  Country: None (occurrence: None)
  Receive Date: 20100409
  Receipt Date: 20100329
  Transmission Date: 20101027
  Serious: Yes (Other)
  Sender: FDA-Public Use
  Company Number: US-AMGEN-QUU403145

PATIENT
  Sex: Female
  Weight: 59 kg

DRUGS (2)
  1. ENBREL [Suspect]
     Indication: RHEUMATOID ARTHRITIS
     Route: 058
     Dates: end: 20091201
  2. LYRICA [Concomitant]
     Indication: PAIN
     Route: 048
     Dates: start: 20100319, end: 20100329

REACTIONS (11)
  - BACK PAIN [None]
  - DECREASED IMMUNE RESPONSIVENESS [None]
  - DIZZINESS [None]
  - DYSARTHRIA [None]
  - FATIGUE [None]
  - FIBROMYALGIA [None]
  - GAIT DISTURBANCE [None]
  - MUSCLE SPASMS [None]
  - SURGERY [None]
  - VERTIGO [None]
  - VISION BLURRED [None]
